FAERS Safety Report 8031429-0 (Version None)
Quarter: 2012Q1

REPORT INFORMATION
  Report Type: 
  Country: None (occurrence: None)
  Receive Date: 20120109
  Receipt Date: 20111230
  Transmission Date: 20120608
  Serious: Yes (Death)
  Sender: FDA-Public Use
  Company Number: IT-CELGENEUS-083-50794-11090347

PATIENT

DRUGS (4)
  1. ALLOPURINOL [Concomitant]
     Dosage: 300 MILLIGRAM
     Route: 048
     Dates: start: 20110201, end: 20110401
  2. VIDAZA [Suspect]
     Dosage: 130 MILLIGRAM
     Route: 058
     Dates: start: 20110212, end: 20110712
  3. HYDROXYUREA [Concomitant]
     Dosage: 1000 MILLIGRAM
     Route: 048
     Dates: start: 20110201, end: 20110401
  4. NEUPOGEN [Concomitant]
     Route: 065
     Dates: start: 20101101, end: 20101101

REACTIONS (3)
  - PNEUMONITIS [None]
  - ACUTE MYELOID LEUKAEMIA [None]
  - NO THERAPEUTIC RESPONSE [None]
